FAERS Safety Report 11270049 (Version 1)
Quarter: 2015Q3

REPORT INFORMATION
  Report Type: Spontaneous
  Country: US (occurrence: US)
  Receive Date: 20150714
  Receipt Date: 20150714
  Transmission Date: 20151125
  Serious: No
  Sender: FDA-Public Use
  Company Number: US-PFIZER INC-2015221057

PATIENT
  Sex: Male

DRUGS (1)
  1. EMBEDA [Suspect]
     Active Substance: MORPHINE SULFATE\NALTREXONE HYDROCHLORIDE
     Dosage: 120 MG (60 MG, 2 A DAY), DAILY
     Dates: start: 20150519, end: 201506

REACTIONS (2)
  - Toothache [Unknown]
  - Tooth disorder [Unknown]

NARRATIVE: CASE EVENT DATE: 2015
